FAERS Safety Report 20598164 (Version 7)
Quarter: 2022Q4

REPORT INFORMATION
  Report Type: Spontaneous
  Country: US (occurrence: US)
  Receive Date: 20220315
  Receipt Date: 20221216
  Transmission Date: 20230112
  Serious: Yes (Other)
  Sender: FDA-Public Use
  Company Number: US-PFIZER INC-202200397807

PATIENT
  Age: 79 Year
  Sex: Female

DRUGS (2)
  1. IBRANCE [Suspect]
     Active Substance: PALBOCICLIB
     Dosage: 100 MG
     Dates: start: 20220228
  2. IBRANCE [Suspect]
     Active Substance: PALBOCICLIB
     Dosage: UNK
     Dates: start: 20220301

REACTIONS (35)
  - Neuropathy peripheral [Unknown]
  - Joint swelling [Unknown]
  - Rash [Recovering/Resolving]
  - Dry skin [Recovered/Resolved]
  - Feeling cold [Unknown]
  - Headache [Recovered/Resolved]
  - Diplopia [Unknown]
  - Muscular weakness [Unknown]
  - Nausea [Unknown]
  - Pain [Unknown]
  - Trichorrhexis [Unknown]
  - Dry mouth [Recovered/Resolved]
  - Diarrhoea [Recovered/Resolved]
  - Dyspnoea [Recovering/Resolving]
  - Decreased appetite [Unknown]
  - Hypoaesthesia [Unknown]
  - Ageusia [Unknown]
  - Abdominal pain [Unknown]
  - Swelling [Not Recovered/Not Resolved]
  - Anaemia [Unknown]
  - Pain in extremity [Unknown]
  - Joint swelling [Unknown]
  - Taste disorder [Unknown]
  - Weight decreased [Recovering/Resolving]
  - Peripheral swelling [Unknown]
  - Contusion [Unknown]
  - Feeling abnormal [Not Recovered/Not Resolved]
  - Dyspnoea [Recovering/Resolving]
  - Ageusia [Recovered/Resolved]
  - Abdominal pain upper [Not Recovered/Not Resolved]
  - Hypoaesthesia [Not Recovered/Not Resolved]
  - Fatigue [Not Recovered/Not Resolved]
  - Pollakiuria [Not Recovered/Not Resolved]
  - Confusional state [Unknown]
  - Neoplasm progression [Unknown]

NARRATIVE: CASE EVENT DATE: 20220101
